FAERS Safety Report 22176448 (Version 3)
Quarter: 2024Q1

REPORT INFORMATION
  Report Type: Spontaneous
  Country: US (occurrence: US)
  Receive Date: 20230405
  Receipt Date: 20240227
  Transmission Date: 20240410
  Serious: No
  Sender: FDA-Public Use
  Company Number: US-GSKCCFUS-Case-01668730_AE-94188

PATIENT
  Age: 32 Year
  Sex: Female
  Weight: 58.5 kg

DRUGS (3)
  1. BENLYSTA [Suspect]
     Active Substance: BELIMUMAB
     Indication: Systemic lupus erythematosus
     Dosage: 600 UG
     Route: 042
     Dates: start: 20230322
  2. BENLYSTA [Suspect]
     Active Substance: BELIMUMAB
     Indication: Product used for unknown indication
     Dosage: UNK
  3. TYLENOL [Concomitant]
     Active Substance: ACETAMINOPHEN
     Indication: Product used for unknown indication
     Dosage: 650 MG
     Route: 048

REACTIONS (8)
  - Erythema [Recovered/Resolved]
  - Fatigue [Recovered/Resolved]
  - Energy increased [Unknown]
  - Injection site pain [Unknown]
  - Exposure via skin contact [Unknown]
  - Wrong technique in device usage process [Unknown]
  - Accidental exposure to product [Unknown]
  - Product use issue [Unknown]

NARRATIVE: CASE EVENT DATE: 20230322
